FAERS Safety Report 4268621-7 (Version None)
Quarter: 2004Q1

REPORT INFORMATION
  Report Type: 
  Country: None (occurrence: None)
  Receive Date: 20040108
  Receipt Date: 20040105
  Transmission Date: 20041129
  Serious: Yes (Hospitalization)
  Sender: FDA-Public Use
  Company Number: TCI2003A04116

PATIENT
  Age: 68 Year
  Sex: Male

DRUGS (2)
  1. LEUPROLIDE ACETATE [Suspect]
     Indication: PROSTATE CANCER
     Dosage: 3.75 MG (3.75 MG, 1 IN 28 D) 5 TIMES SUBCUTANEOUS
     Route: 058
     Dates: start: 20030705, end: 20031027
  2. BICALUTAMIDE (TABLETS) [Concomitant]

REACTIONS (5)
  - DELIRIUM [None]
  - DEPRESSION [None]
  - INSOMNIA [None]
  - IRRITABILITY [None]
  - RESTLESSNESS [None]
